FAERS Safety Report 10190086 (Version 2)
Quarter: 2014Q2

REPORT INFORMATION
  Report Type: Spontaneous
  Country: US (occurrence: US)
  Receive Date: 20140522
  Receipt Date: 20140522
  Transmission Date: 20141212
  Serious: No
  Sender: FDA-Public Use
  Company Number: US-ASTRAZENECA-2013SE77183

PATIENT
  Age: 44 Year
  Sex: Female
  Weight: 47.6 kg

DRUGS (3)
  1. PULMICORT FLEXHALER [Suspect]
     Indication: ASTHMA
     Dosage: 180 MCG 2 PUFFS BID
     Route: 055
  2. PULMICORT FLEXHALER [Suspect]
     Indication: ASTHMA
     Dosage: 180 MCG 2 PUFFS ONCE DAILY
     Route: 055
  3. NOT SPECIFIED [Concomitant]
     Indication: HYPERSENSITIVITY

REACTIONS (4)
  - Exposure during pregnancy [Recovered/Resolved]
  - Chest discomfort [Not Recovered/Not Resolved]
  - Dyspnoea [Not Recovered/Not Resolved]
  - Intentional product misuse [Unknown]
